FAERS Safety Report 9278645 (Version 1)
Quarter: 2013Q2

REPORT INFORMATION
  Report Type: Spontaneous
  Country: US (occurrence: None)
  Receive Date: 20130506
  Receipt Date: 20130506
  Transmission Date: 20140414
  Serious: Yes (Hospitalization)
  Sender: FDA-Public Use
  Company Number: None

PATIENT
  Age: 67 Year
  Sex: Male
  Weight: 91 kg

DRUGS (1)
  1. NAFCILLIN [Suspect]
     Indication: ENDOCARDITIS
     Route: 041
     Dates: start: 20130427, end: 20130501

REACTIONS (3)
  - Confusional state [None]
  - Myoclonus [None]
  - Renal failure acute [None]
